FAERS Safety Report 13644241 (Version 3)
Quarter: 2017Q2

REPORT INFORMATION
  Report Type: Spontaneous
  Country: US (occurrence: US)
  Receive Date: 20170612
  Receipt Date: 20170630
  Transmission Date: 20170830
  Serious: No
  Sender: FDA-Public Use
  Company Number: US-PFIZER INC-2017254250

PATIENT
  Age: 43 Year
  Sex: Female
  Weight: 83.46 kg

DRUGS (13)
  1. LAMOTRIGINE. [Concomitant]
     Active Substance: LAMOTRIGINE
     Indication: PANIC ATTACK
     Dosage: 300 MG, DAILY (100MG TABLETS, 3 TABLETS ONCE AT NIGHT )
     Route: 048
     Dates: start: 201607
  2. CLONAZEPAM. [Concomitant]
     Active Substance: CLONAZEPAM
     Indication: PANIC DISORDER
     Dosage: 1 MG, 2X/DAY (1MG TABLET, ONE IN MORNING AND ONE AT BEDTIME )
     Route: 048
     Dates: start: 201607
  3. PRISTIQ EXTENDED-RELEASE [Suspect]
     Active Substance: DESVENLAFAXINE SUCCINATE
     Indication: PANIC ATTACK
  4. HYDROCODONE [Concomitant]
     Active Substance: HYDROCODONE
     Dosage: 5 MG, AS NEEDED
  5. PRISTIQ EXTENDED-RELEASE [Suspect]
     Active Substance: DESVENLAFAXINE SUCCINATE
     Indication: DEPRESSION
     Dosage: 50 UNK, UNK
  6. HYDROCODONE [Concomitant]
     Active Substance: HYDROCODONE
     Dosage: 7.5 UNK, UNK
     Dates: start: 2015
  7. PRISTIQ EXTENDED-RELEASE [Suspect]
     Active Substance: DESVENLAFAXINE SUCCINATE
     Indication: NIGHT SWEATS
  8. CLONAZEPAM. [Concomitant]
     Active Substance: CLONAZEPAM
     Indication: ANXIETY
  9. ALPRAZOLAM. [Concomitant]
     Active Substance: ALPRAZOLAM
     Indication: PANIC ATTACK
     Dosage: 1 MG, AS NEEDED
     Route: 048
     Dates: start: 2011
  10. HYDROCODONE [Concomitant]
     Active Substance: HYDROCODONE
     Indication: PAIN
     Dosage: 10 UNK, UNK
  11. PRISTIQ EXTENDED-RELEASE [Suspect]
     Active Substance: DESVENLAFAXINE SUCCINATE
     Indication: SLEEP DISORDER
     Dosage: 100 MG, ONCE A DAY (100MG TABLET ONCE A DAY AT NIGHT)
     Dates: start: 201607
  12. PRISTIQ EXTENDED-RELEASE [Suspect]
     Active Substance: DESVENLAFAXINE SUCCINATE
     Indication: SUICIDAL IDEATION
  13. PRISTIQ EXTENDED-RELEASE [Suspect]
     Active Substance: DESVENLAFAXINE SUCCINATE
     Indication: ANXIETY

REACTIONS (11)
  - Crying [Unknown]
  - Drug dose omission [Unknown]
  - Irritability [Unknown]
  - Malaise [Unknown]
  - Visual impairment [Unknown]
  - Vision blurred [Not Recovered/Not Resolved]
  - Fear [Unknown]
  - Nausea [Not Recovered/Not Resolved]
  - Headache [Not Recovered/Not Resolved]
  - Dizziness [Unknown]
  - Feeling abnormal [Unknown]

NARRATIVE: CASE EVENT DATE: 201705
